FAERS Safety Report 24877466 (Version 1)
Quarter: 2025Q1

REPORT INFORMATION
  Report Type: Report from Study
  Country: US (occurrence: US)
  Receive Date: 20250123
  Receipt Date: 20250123
  Transmission Date: 20250408
  Serious: Yes (Other)
  Sender: ACADIA PHARMACEUTICALS
  Company Number: US-ACADIA PHARMACEUTICALS INC.-ACA-2025-PIM-000529

PATIENT
  Age: 76 Year
  Sex: Female

DRUGS (17)
  1. NUPLAZID [Suspect]
     Active Substance: PIMAVANSERIN TARTRATE
     Indication: Parkinson^s disease
     Dosage: 34 MILLIGRAM, QD
     Route: 048
     Dates: start: 20240730
  2. ROSUVASTATIN [Concomitant]
     Active Substance: ROSUVASTATIN
  3. EZETIMIBE [Concomitant]
     Active Substance: EZETIMIBE
  4. ASPIRIN [Concomitant]
     Active Substance: ASPIRIN
  5. JARDIANCE [Concomitant]
     Active Substance: EMPAGLIFLOZIN
  6. ESCITALOPRAM [Concomitant]
     Active Substance: ESCITALOPRAM OXALATE
  7. VITAMIN D3 [Concomitant]
     Active Substance: CHOLECALCIFEROL
  8. BUPROPION [Concomitant]
     Active Substance: BUPROPION
  9. PANTOPRAZOLE [Concomitant]
     Active Substance: PANTOPRAZOLE
  10. LOSARTAN [Concomitant]
     Active Substance: LOSARTAN
  11. ROPINIROLE [Concomitant]
     Active Substance: ROPINIROLE
  12. CLOPIDOGREL [Concomitant]
     Active Substance: CLOPIDOGREL BISULFATE
  13. POTASSIUM GLUCONATE [Concomitant]
     Active Substance: POTASSIUM GLUCONATE
  14. COQ [Concomitant]
  15. VITAMIN E [Concomitant]
     Active Substance: .ALPHA.-TOCOPHEROL
  16. B COMPLETE [VITAMIN B COMPLEX] [Concomitant]
  17. RIVASTIGMINE [Concomitant]
     Active Substance: RIVASTIGMINE
     Dosage: UNK, QD

REACTIONS (1)
  - Pneumonia [Not Recovered/Not Resolved]

NARRATIVE: CASE EVENT DATE: 20250102
